FAERS Safety Report 8607398-9 (Version None)
Quarter: 2012Q3

REPORT INFORMATION
  Report Type: 
  Country: None (occurrence: None)
  Receive Date: 20120808
  Receipt Date: 20120725
  Transmission Date: 20120928
  Serious: Yes (Other)
  Sender: FDA-Public Use
  Company Number: None

PATIENT
  Age: 63 Year
  Sex: Male

DRUGS (4)
  1. PERMAX [Concomitant]
  2. MADOPAR [Concomitant]
  3. COMTAN [Suspect]
     Dosage: ORAL; 5 TABLET (500 MG) DAILY, ORAL
     Route: 048
     Dates: start: 20110401, end: 20120723
  4. COMTAN [Suspect]
     Dosage: ORAL; 5 TABLET (500 MG) DAILY, ORAL
     Route: 048
     Dates: start: 20120724

REACTIONS (3)
  - PULMONARY TUBERCULOSIS [None]
  - RASH [None]
  - CONDITION AGGRAVATED [None]
